FAERS Safety Report 18236279 (Version 1)
Quarter: 2020Q3

REPORT INFORMATION
  Report Type: Spontaneous
  Country: PL (occurrence: PL)
  Receive Date: 20200906
  Receipt Date: 20200906
  Transmission Date: 20201103
  Serious: Yes (Other)
  Sender: FDA-Public Use
  Company Number: PL-PFIZER INC-2020316960

PATIENT
  Sex: Male

DRUGS (1)
  1. DALACIN C [Suspect]
     Active Substance: CLINDAMYCIN
     Indication: STAPHYLOCOCCAL INFECTION
     Dosage: 300 MG, 3X/DAY
     Dates: start: 202008, end: 202008

REACTIONS (7)
  - Alcohol interaction [Unknown]
  - Pain [Unknown]
  - Ocular hyperaemia [Not Recovered/Not Resolved]
  - Retching [Not Recovered/Not Resolved]
  - Ocular icterus [Not Recovered/Not Resolved]
  - Liver injury [Unknown]
  - Vomiting [Not Recovered/Not Resolved]
